FAERS Safety Report 12601518 (Version 2)
Quarter: 2016Q4

REPORT INFORMATION
  Report Type: Report from Study
  Country: US (occurrence: US)
  Receive Date: 20160728
  Receipt Date: 20161018
  Transmission Date: 20170207
  Serious: Yes (Hospitalization, Other)
  Sender: FDA-Public Use
  Company Number: PHEH2016US017871

PATIENT
  Age: 67 Year
  Sex: Male

DRUGS (3)
  1. COSENTYX [Suspect]
     Active Substance: SECUKINUMAB
     Indication: PSORIATIC ARTHROPATHY
     Dosage: 150 MG, UNK
     Route: 030
     Dates: start: 201606
  2. COSENTYX [Suspect]
     Active Substance: SECUKINUMAB
     Dosage: 350 MG, QMO
     Route: 058
  3. COSENTYX [Suspect]
     Active Substance: SECUKINUMAB
     Indication: ARTHRITIS
     Dosage: 300 MG, QMO
     Route: 058

REACTIONS (8)
  - Subdural haematoma [Unknown]
  - Product use issue [Unknown]
  - Mental impairment [Unknown]
  - Incorrect dose administered [Unknown]
  - Thrombosis [Unknown]
  - Nerve compression [Unknown]
  - Incorrect route of drug administration [Unknown]
  - Dysgraphia [Unknown]

NARRATIVE: CASE EVENT DATE: 20160914
